FAERS Safety Report 6076555-0 (Version None)
Quarter: 2009Q1

REPORT INFORMATION
  Report Type: 
  Country: None (occurrence: None)
  Receive Date: 20090213
  Receipt Date: 20090206
  Transmission Date: 20090719
  Serious: Yes (Hospitalization)
  Sender: FDA-Public Use
  Company Number: FR-BRISTOL-MYERS SQUIBB COMPANY-14503791

PATIENT
  Age: 69 Year
  Sex: Female

DRUGS (16)
  1. GLUCOPHAGE [Suspect]
     Indication: DIABETES MELLITUS
     Route: 048
     Dates: end: 20071231
  2. PREVISCAN [Suspect]
     Route: 048
  3. DIANTALVIC [Suspect]
     Indication: PAIN
     Route: 048
     Dates: start: 20071207, end: 20071213
  4. MOBIC [Suspect]
     Route: 048
     Dates: start: 20071207, end: 20071213
  5. VOLTARENE [Suspect]
     Route: 003
     Dates: start: 20071207, end: 20071213
  6. PROZAC [Concomitant]
     Indication: DEPRESSION
     Route: 048
  7. LEVOTHYROX [Concomitant]
     Indication: HYPOTHYROIDISM
     Route: 048
  8. TRIATEC [Concomitant]
     Indication: CARDIAC FAILURE
     Route: 048
  9. CARDENSIEL [Concomitant]
     Indication: CARDIAC FAILURE
     Route: 048
  10. LASILIX [Concomitant]
     Indication: CARDIAC FAILURE
     Route: 048
  11. CORDARONE [Concomitant]
     Indication: ATRIAL FIBRILLATION
     Route: 048
  12. TAHOR [Concomitant]
     Indication: DYSLIPIDAEMIA
     Route: 048
  13. AUGMENTIN '125' [Concomitant]
     Route: 048
     Dates: start: 20071207, end: 20071213
  14. PYOSTACINE [Concomitant]
     Route: 048
     Dates: start: 20071213, end: 20071221
  15. NEXIUM [Concomitant]
     Route: 048
     Dates: start: 20071218, end: 20071231
  16. PRIMPERAN TAB [Concomitant]
     Route: 048
     Dates: start: 20071218, end: 20071231

REACTIONS (4)
  - ANOREXIA [None]
  - GENERAL PHYSICAL HEALTH DETERIORATION [None]
  - INTERNATIONAL NORMALISED RATIO INCREASED [None]
  - RENAL FAILURE ACUTE [None]
